FAERS Safety Report 26145677 (Version 1)
Quarter: 2025Q4

REPORT INFORMATION
  Report Type: Spontaneous
  Country: US (occurrence: US)
  Receive Date: 20251211
  Receipt Date: 20251211
  Transmission Date: 20260117
  Serious: No
  Sender: BAYER HEALTHCARE PHARMACEUTICALS INC.
  Company Number: US-BAYER-2025A162931

PATIENT
  Sex: Female

DRUGS (1)
  1. LYNKUET [Suspect]
     Active Substance: ELINZANETANT
     Route: 048

REACTIONS (1)
  - Fatigue [None]
